FAERS Safety Report 7441819-2 (Version None)
Quarter: 2011Q2

REPORT INFORMATION
  Report Type: 
  Country: None (occurrence: None)
  Receive Date: 20110428
  Receipt Date: 20110418
  Transmission Date: 20111010
  Serious: Yes (Death, Hospitalization, Other)
  Sender: FDA-Public Use
  Company Number: DE-SANOFI-AVENTIS-200820797GDDC

PATIENT
  Age: 72 Year
  Sex: Male
  Weight: 64 kg

DRUGS (11)
  1. RAMIPRIL [Concomitant]
     Dosage: DOSE AS USED: 5/25 MG
     Dates: start: 20080919, end: 20081114
  2. DEXAMETHASONE [Concomitant]
     Dates: start: 20080812, end: 20081105
  3. FERROUS GLYCINE SULFATE [Concomitant]
     Dates: start: 20080924, end: 20081114
  4. HAMAMELIS LIQUID EXTRACT [Concomitant]
     Dates: start: 20081015, end: 20081114
  5. AFLIBERCEPT [Suspect]
     Dosage: DOSE UNIT: 6 MG/KG
     Route: 042
     Dates: start: 20081105, end: 20081105
  6. DOCETAXEL [Suspect]
     Dosage: DOSE UNIT: 75 MG/M**2
     Route: 042
     Dates: start: 20080813, end: 20080813
  7. MESALAZINE [Concomitant]
     Dates: start: 20080221, end: 20081114
  8. DOCETAXEL [Suspect]
     Dosage: DOSE UNIT: 75 MG/M**2
     Route: 042
     Dates: start: 20081105, end: 20081105
  9. OMEPRAZOLE [Concomitant]
     Dates: start: 20080812, end: 20081114
  10. AFLIBERCEPT [Suspect]
     Dosage: DOSE UNIT: 6 MG/KG
     Route: 042
     Dates: start: 20080813, end: 20080813
  11. PREDNISONE [Suspect]
     Route: 048
     Dates: start: 20080813, end: 20081113

REACTIONS (2)
  - INTESTINAL PERFORATION [None]
  - ENTEROCOLITIS HAEMORRHAGIC [None]
